FAERS Safety Report 5987572-0 (Version None)
Quarter: 2008Q4

REPORT INFORMATION
  Report Type: 
  Country: None (occurrence: None)
  Receive Date: 20081128
  Receipt Date: 20080813
  Transmission Date: 20090506
  Serious: Yes (Hospitalization)
  Sender: FDA-Public Use
  Company Number: 310005M08USA

PATIENT
  Age: 40 Year
  Sex: Female

DRUGS (3)
  1. GONAL-F [Suspect]
     Indication: INFERTILITY
     Dosage: 150 MG, 2 IN 1 DAYS : 225 MG, 2 IN 1 DAYS
     Dates: start: 20080501, end: 20080101
  2. GONAL-F [Suspect]
     Indication: INFERTILITY
     Dosage: 150 MG, 2 IN 1 DAYS : 225 MG, 2 IN 1 DAYS
     Dates: start: 20080808, end: 20080812
  3. LUPRON [Suspect]

REACTIONS (2)
  - DYSPNOEA [None]
  - HYPERSENSITIVITY [None]
